FAERS Safety Report 7592318-9 (Version None)
Quarter: 2011Q3

REPORT INFORMATION
  Report Type: 
  Country: None (occurrence: None)
  Receive Date: 20110706
  Receipt Date: 20110623
  Transmission Date: 20111222
  Serious: Yes (Hospitalization)
  Sender: FDA-Public Use
  Company Number: US-JNJFOC-20110500801

PATIENT
  Sex: Female
  Weight: 83.92 kg

DRUGS (4)
  1. REMICADE [Suspect]
     Indication: PSORIASIS
     Route: 042
     Dates: start: 20020101
  2. VITAMIN D AND ANALOGUES [Concomitant]
     Route: 061
  3. ADALIMUMAB [Concomitant]
     Dates: start: 20090601
  4. CORTICOSTEROIDS [Concomitant]

REACTIONS (1)
  - DIVERTICULITIS [None]
